FAERS Safety Report 4931412-5 (Version None)
Quarter: 2006Q1

REPORT INFORMATION
  Report Type: 
  Country: None (occurrence: None)
  Receive Date: 20060228
  Receipt Date: 20060213
  Transmission Date: 20060701
  Serious: Yes (Hospitalization, Other)
  Sender: FDA-Public Use
  Company Number: HP200500090

PATIENT
  Age: 62 Year
  Sex: Male
  Weight: 83.9 kg

DRUGS (5)
  1. EMBELINE [Suspect]
     Indication: PEMPHIGOID
     Dosage: BUCCAL
     Route: 002
     Dates: start: 20000101, end: 20050701
  2. CELLCEPT [Concomitant]
  3. LIPITOR /NET/(ATORVASTATIN CALCIUM) [Concomitant]
  4. PREDNISONE TAB [Concomitant]
  5. MONOPRIL [Concomitant]

REACTIONS (5)
  - ADRENAL MASS [None]
  - ATELECTASIS [None]
  - INCORRECT ROUTE OF DRUG ADMINISTRATION [None]
  - OFF LABEL USE [None]
  - PNEUMONIA [None]
